FAERS Safety Report 20194759 (Version 1)
Quarter: 2021Q4

REPORT INFORMATION
  Report Type: Report from Study
  Country: IE (occurrence: IE)
  Receive Date: 20211216
  Receipt Date: 20211216
  Transmission Date: 20220304
  Serious: Yes (Hospitalization)
  Sender: FDA-Public Use
  Company Number: IE-AstraZeneca-2021A809444

PATIENT
  Age: 1 Year
  Sex: Male

DRUGS (12)
  1. SYNAGIS [Suspect]
     Active Substance: PALIVIZUMAB
     Indication: Bronchopulmonary dysplasia
     Dosage: AFTER 28 DAYS
     Route: 030
     Dates: start: 20210106, end: 2021
  2. SYNAGIS [Suspect]
     Active Substance: PALIVIZUMAB
     Dosage: AFTER 28 DAYS
     Route: 030
     Dates: start: 20211021, end: 2021
  3. SYNAGIS [Suspect]
     Active Substance: PALIVIZUMAB
     Dosage: AFTER 28 DAYS
     Route: 030
     Dates: start: 2021, end: 2021
  4. SYNAGIS [Suspect]
     Active Substance: PALIVIZUMAB
     Dosage: AFTER 28 DAYS
     Route: 030
     Dates: start: 20211210
  5. OXYGEN [Concomitant]
     Active Substance: OXYGEN
     Indication: Product used for unknown indication
     Dosage: 0.25L CONTINUOUSLY
     Route: 065
  6. OMEPROSOLE [Concomitant]
     Indication: Product used for unknown indication
     Route: 065
  7. GABAPENTIN [Concomitant]
     Active Substance: GABAPENTIN
     Indication: Product used for unknown indication
     Route: 065
  8. MELATONIN [Concomitant]
     Active Substance: MELATONIN
     Indication: Product used for unknown indication
     Route: 065
  9. GLYCOPYRRONIUM [Concomitant]
     Active Substance: GLYCOPYRRONIUM
     Indication: Product used for unknown indication
     Route: 065
  10. VALPROATE SODIUM [Concomitant]
     Active Substance: VALPROATE SODIUM
     Indication: Product used for unknown indication
     Route: 065
  11. ERYTHROMYCIN [Concomitant]
     Active Substance: ERYTHROMYCIN
     Indication: Product used for unknown indication
     Dosage: ON ALTERNATE DAYS
     Route: 065
  12. OMEPRAZOLE [Concomitant]
     Active Substance: OMEPRAZOLE
     Indication: Product used for unknown indication
     Route: 065

REACTIONS (1)
  - COVID-19 [Recovered/Resolved]

NARRATIVE: CASE EVENT DATE: 20211110
